FAERS Safety Report 9711507 (Version 1)
Quarter: 2013Q4

REPORT INFORMATION
  Report Type: Spontaneous
  Country: US (occurrence: US)
  Receive Date: 20131126
  Receipt Date: 20131126
  Transmission Date: 20140711
  Serious: No
  Sender: FDA-Public Use
  Company Number: US-BRISTOL-MYERS SQUIBB COMPANY-18771733

PATIENT
  Age: 53 Year
  Sex: Male

DRUGS (4)
  1. BYDUREON [Suspect]
     Dates: start: 201301
  2. METFORMIN HCL [Suspect]
  3. LISINOPRIL [Concomitant]
  4. GLYBURIDE [Concomitant]

REACTIONS (1)
  - Malaise [Unknown]
